FAERS Safety Report 21476540 (Version 1)
Quarter: 2022Q4

REPORT INFORMATION
  Report Type: Spontaneous
  Country: CN (occurrence: CN)
  Receive Date: 20221019
  Receipt Date: 20221019
  Transmission Date: 20230113
  Serious: Yes (Other)
  Sender: FDA-Public Use
  Company Number: None

PATIENT
  Age: 55 Year
  Sex: Female
  Weight: 45 kg

DRUGS (4)
  1. CYCLOPHOSPHAMIDE [Suspect]
     Active Substance: CYCLOPHOSPHAMIDE
     Indication: Breast cancer female
     Dosage: AT 8:32 HOURS, 0.7 G, QD, DILUTED WITH 0.9% SODIUM CHLORIDE (100 ML)
     Route: 041
     Dates: start: 20220918, end: 20220918
  2. SODIUM CHLORIDE [Suspect]
     Active Substance: SODIUM CHLORIDE
     Indication: Medication dilution
     Dosage: AT 8:32 HOURS, 100 ML, QD, DILUTED IN CYCLOPHOSPHAMIDE (0.7G)
     Route: 041
     Dates: start: 20220918, end: 20220918
  3. SODIUM CHLORIDE [Suspect]
     Active Substance: SODIUM CHLORIDE
     Dosage: AT 8:32 HOURS, 100 ML, QD, DILUTED IN PIRARUBICIN HYDROCHLORIDE (70 MG)
     Route: 041
     Dates: start: 20220918, end: 20220918
  4. PIRARUBICIN HYDROCHLORIDE [Suspect]
     Active Substance: PIRARUBICIN HYDROCHLORIDE
     Indication: Breast cancer female
     Dosage: AT 8:32 HOURS, 70 MG, QD, DILUTED WITH 0.9% SODIUM CHLORIDE (100 ML)
     Route: 041
     Dates: start: 20220918, end: 20220918

REACTIONS (2)
  - Myelosuppression [Recovering/Resolving]
  - White blood cell count decreased [Recovering/Resolving]

NARRATIVE: CASE EVENT DATE: 20220926
